FAERS Safety Report 7809972-6 (Version None)
Quarter: 2011Q4

REPORT INFORMATION
  Report Type: 
  Country: None (occurrence: None)
  Receive Date: 20111012
  Receipt Date: 20111010
  Transmission Date: 20120403
  Serious: Yes (Death, Other)
  Sender: FDA-Public Use
  Company Number: PHEH2009US07474

PATIENT
  Sex: Female

DRUGS (7)
  1. TAXOL [Concomitant]
  2. HERCEPTIN [Concomitant]
  3. TAMOXIFEN CITRATE [Concomitant]
  4. NAVELBINE [Concomitant]
  5. XANAX [Concomitant]
  6. ZOMETA [Suspect]
  7. CARBOPLATIN [Concomitant]

REACTIONS (8)
  - PAIN [None]
  - ANXIETY [None]
  - GENERAL PHYSICAL HEALTH DETERIORATION [None]
  - DISABILITY [None]
  - ANHEDONIA [None]
  - DEATH [None]
  - OSTEONECROSIS OF JAW [None]
  - HAEMOPTYSIS [None]
